FAERS Safety Report 21188522 (Version 1)
Quarter: 2022Q3

REPORT INFORMATION
  Report Type: Spontaneous
  Country: US (occurrence: US)
  Receive Date: 20220809
  Receipt Date: 20220809
  Transmission Date: 20221027
  Serious: No
  Sender: FDA-Public Use
  Company Number: US-IGSA-BIG0016954

PATIENT
  Age: 25 Year
  Sex: Male

DRUGS (1)
  1. GAMMAKED [Suspect]
     Active Substance: HUMAN IMMUNOGLOBULIN G
     Indication: Blood immunoglobulin G decreased
     Dosage: 5 GRAM PER KILOGRAM, Q.WK.
     Route: 042
     Dates: start: 20210223, end: 20211019

REACTIONS (8)
  - Anaemia [Recovered/Resolved]
  - Mouth injury [Recovered/Resolved]
  - Alopecia [Recovered/Resolved]
  - Headache [Recovered/Resolved]
  - Meningitis aseptic [Recovered/Resolved]
  - Feeling abnormal [Recovered/Resolved]
  - Haemoglobin decreased [Recovered/Resolved]
  - Haptoglobin decreased [Recovered/Resolved]

NARRATIVE: CASE EVENT DATE: 20210201
